FAERS Safety Report 4710498-7 (Version None)
Quarter: 2005Q3

REPORT INFORMATION
  Report Type: 
  Country: None (occurrence: None)
  Receive Date: 20050711
  Receipt Date: 20050603
  Transmission Date: 20060218
  Serious: Yes (Hospitalization)
  Sender: FDA-Public Use
  Company Number: CH-ROCHE-406772

PATIENT
  Age: 49 Year
  Sex: Male

DRUGS (14)
  1. INVIRASE [Suspect]
     Dosage: DURATION OF USE: LONG TERM
     Route: 048
     Dates: end: 20050512
  2. COMBIVIR [Suspect]
     Dosage: DURATION OF USE: LONG TERM
     Route: 048
     Dates: start: 20050115, end: 20050512
  3. NEXIUM [Suspect]
     Indication: DRUG USE FOR UNKNOWN INDICATION
     Dosage: DURATION OF USE: SHORT TERM
     Route: 048
     Dates: start: 20050421
  4. REMERON [Suspect]
     Indication: DRUG USE FOR UNKNOWN INDICATION
     Dosage: DURATION OS USE: LONG TERM
     Route: 048
     Dates: start: 20050315
  5. PREDNISONE TAB [Concomitant]
     Dosage: DURATION OF USE: LONG TERM
     Route: 048
     Dates: start: 20040615
  6. NORVIR [Concomitant]
     Dosage: DURATION OF USE: LONG TERM
     Route: 048
     Dates: start: 20050115, end: 20050512
  7. DALACIN C [Concomitant]
     Dosage: DURATION OF USE: SHORT TERM
     Route: 048
     Dates: start: 20050324
  8. URSODEOXYCHOLIC ACID [Concomitant]
     Dosage: DRUG NAME REPORTED AS DE-URSIL RR DURATION OF USE: SHORT TERM
     Route: 048
     Dates: start: 20050421
  9. CALCIMAGON-D3 [Concomitant]
     Dosage: DURATION OF USE: SHORT TERM
     Route: 048
     Dates: start: 20050421
  10. KCL-ZYMA [Concomitant]
     Dosage: DRUG NAME REPORTED AS KCL-RETARD ZYMA DURATION OF USE: SHORT TERM
     Route: 048
  11. MAGNESIOCARD [Concomitant]
     Dosage: DRUG NAME REPORTED AS: MAGNESIOCARD CITRON FORM: POWDERS, GRANULES DURATION OF USE: SHORT TERM
     Route: 048
  12. VITIRON [Concomitant]
     Dosage: DRUG NAME REPORTED AS VITIRON DURATION OF USE: SHORT TERM
     Route: 048
     Dates: start: 20050502
  13. METHADONE HCL [Concomitant]
     Dosage: DRUG NAME REPORTED AS METHADON STREULI DURATION OF USE: LONG TERM
     Route: 048
     Dates: start: 20050502
  14. AGAROL [Concomitant]
     Dosage: FORM; LIQUIDS, EMULSIONS DURATION OF USE: SHORT TERM
     Route: 048
     Dates: start: 20050422

REACTIONS (4)
  - APLASTIC ANAEMIA [None]
  - BLOOD BILIRUBIN INCREASED [None]
  - BLOOD LACTATE DEHYDROGENASE INCREASED [None]
  - THROMBOCYTOPENIA [None]
